FAERS Safety Report 13745706 (Version 2)
Quarter: 2017Q4

REPORT INFORMATION
  Report Type: Report from Study
  Country: BR (occurrence: BR)
  Receive Date: 20170712
  Receipt Date: 20171006
  Transmission Date: 20180320
  Serious: Yes (Hospitalization, Other)
  Sender: FDA-Public Use
  Company Number: BR-PFIZER INC-2017249161

PATIENT
  Age: 63 Year
  Sex: Female
  Weight: 51.4 kg

DRUGS (2)
  1. FULVESTRANT. [Concomitant]
     Active Substance: FULVESTRANT
  2. PALBOCICLIB [Suspect]
     Active Substance: PALBOCICLIB
     Dosage: 125 MG, UNK
     Route: 048
     Dates: end: 20170929

REACTIONS (5)
  - Neutropenia [Recovering/Resolving]
  - Pain [Unknown]
  - Pneumonia [Unknown]
  - Pleural effusion [Unknown]
  - Asthenia [Unknown]

NARRATIVE: CASE EVENT DATE: 20170703
